FAERS Safety Report 5124364-9 (Version None)
Quarter: 2006Q3

REPORT INFORMATION
  Report Type: 
  Country: None (occurrence: None)
  Receive Date: 20060816
  Receipt Date: 20060710
  Transmission Date: 20061208
  Serious: No
  Sender: FDA-Public Use
  Company Number: US200607001500

PATIENT
  Age: 48 Year
  Sex: Male

DRUGS (4)
  1. CIALIS [Suspect]
     Indication: ERECTILE DYSFUNCTION
     Dosage: SEE IMAGE
     Dates: start: 20060619
  2. NORVASC [Concomitant]
  3. BENZBROMARON-RATIOPHARM (BENZBROMARONE) [Concomitant]
  4. WELLBUTRIN [Concomitant]

REACTIONS (7)
  - ARTHRALGIA [None]
  - EJACULATION DISORDER [None]
  - EJACULATION FAILURE [None]
  - FLUSHING [None]
  - HEADACHE [None]
  - NASAL CONGESTION [None]
  - THERAPEUTIC RESPONSE DECREASED [None]
